FAERS Safety Report 4368899-5 (Version None)
Quarter: 2004Q2

REPORT INFORMATION
  Report Type: 
  Country: None (occurrence: None)
  Receive Date: 20040525
  Receipt Date: 20040510
  Transmission Date: 20050107
  Serious: Yes (Hospitalization, Other)
  Sender: FDA-Public Use
  Company Number: 194005

PATIENT
  Age: 51 Year
  Sex: Female
  Weight: 124.7392 kg

DRUGS (11)
  1. AVONEX [Suspect]
     Indication: MULTIPLE SCLEROSIS
     Dosage: 30 MCG QW IM
     Route: 030
     Dates: start: 20020101, end: 20020601
  2. TOPROL-XL [Concomitant]
  3. NITROGLYCERIN [Concomitant]
  4. PLAVIX [Concomitant]
  5. FLONASE [Concomitant]
  6. ALUPENT [Concomitant]
  7. CLARINEX [Concomitant]
  8. SYNTHROID [Concomitant]
  9. ADVICOR [Concomitant]
  10. TRICOR [Concomitant]
  11. FOLIC ACID [Concomitant]

REACTIONS (4)
  - CARDIAC FAILURE CONGESTIVE [None]
  - CHEST PAIN [None]
  - CORONARY ARTERY OCCLUSION [None]
  - HYPOTHYROIDISM [None]
